FAERS Safety Report 4900889-3 (Version None)
Quarter: 2006Q1

REPORT INFORMATION
  Report Type: 
  Country: None (occurrence: None)
  Receive Date: 20060201
  Receipt Date: 20060117
  Transmission Date: 20060701
  Serious: Yes (Hospitalization)
  Sender: FDA-Public Use
  Company Number: PHBS2005FR17256

PATIENT
  Age: 32 Year
  Sex: Female

DRUGS (4)
  1. METOPROLOL [Suspect]
     Indication: INCORRECT DOSE ADMINISTERED
     Dosage: 11150 MG, ONCE/SINGLE, ORAL
     Route: 048
  2. DIGOXIN [Suspect]
     Indication: INCORRECT DOSE ADMINISTERED
     Dosage: 2.25MG, ONCE/SINGLE, ORAL
     Route: 048
  3. NORTRIPTYLINE HCL [Suspect]
     Dosage: 3750 MG, ONCE/SINGLE, ORAL
     Route: 048
  4. CYMAMEMAZINE [Concomitant]

REACTIONS (13)
  - ALANINE AMINOTRANSFERASE INCREASED [None]
  - ASPARTATE AMINOTRANSFERASE INCREASED [None]
  - BEZOAR [None]
  - BLOOD BILIRUBIN INCREASED [None]
  - BLOOD CREATININE INCREASED [None]
  - BLOOD GLUCOSE INCREASED [None]
  - BLOOD POTASSIUM INCREASED [None]
  - BLOOD SODIUM DECREASED [None]
  - CARDIOACTIVE DRUG LEVEL INCREASED [None]
  - ELECTROCARDIOGRAM ABNORMAL [None]
  - HEART RATE DECREASED [None]
  - MULTIPLE DRUG OVERDOSE INTENTIONAL [None]
  - VOMITING [None]
